FAERS Safety Report 7836656 (Version 5)
Quarter: 2013Q3

REPORT INFORMATION
  Report Type: Spontaneous
  Country: US (occurrence: US)
  Receive Date: 20110302
  Receipt Date: 20130916
  Transmission Date: 20140515
  Serious: Yes (Hospitalization)
  Sender: FDA-Public Use
  Company Number: US-BAYER-2011-018675

PATIENT
  Age: 30 Year
  Sex: Female
  Weight: 73.47 kg

DRUGS (12)
  1. BEYAZ [Suspect]
     Indication: CONTRACEPTION
     Dosage: UNK
     Dates: start: 20100915
  2. YASMIN [Suspect]
     Indication: CONTRACEPTION
  3. AMPHETAMINE SALTS [Concomitant]
     Dosage: 30 MG, UNK
  4. VALACICLOVIR [Concomitant]
     Dosage: 500 MG, UNK
  5. BIAXIN [Concomitant]
     Dosage: 500 MG, BID
  6. DULERA [Concomitant]
     Dosage: 200 MCG / 5 MCG TWICE DAILY
  7. SALINE [Concomitant]
  8. SINGULAIR [Concomitant]
     Dosage: 10 MG, DAILY
  9. PROTONIX [Concomitant]
  10. CARAFATE [Concomitant]
  11. ADDERALL XR [Concomitant]
     Dosage: 30 MG, UNK
  12. CELESTONE [Concomitant]
     Dosage: 9 MG, UNK
     Route: 042
     Dates: start: 20110207

REACTIONS (1)
  - Pulmonary embolism [None]
